FAERS Safety Report 5478532-7 (Version None)
Quarter: 2007Q4

REPORT INFORMATION
  Report Type: 
  Country: None (occurrence: None)
  Receive Date: 20071005
  Receipt Date: 20070928
  Transmission Date: 20080405
  Serious: Yes (Death)
  Sender: FDA-Public Use
  Company Number: US-SANOFI-SYNTHELABO-A03200705802

PATIENT
  Sex: Female

DRUGS (3)
  1. ANTIDEPRESSANTS [Concomitant]
     Indication: DEPRESSION
     Dosage: UNK
     Route: 065
  2. ALCOHOL [Suspect]
     Indication: DRUG USE FOR UNKNOWN INDICATION
     Dosage: UNK
     Route: 048
  3. AMBIEN [Suspect]
     Indication: INSOMNIA
     Dosage: UNK
     Route: 048
     Dates: start: 20061101

REACTIONS (4)
  - COMPLETED SUICIDE [None]
  - DRUG SCREEN POSITIVE [None]
  - GUN SHOT WOUND [None]
  - URINE ALCOHOL TEST POSITIVE [None]
